FAERS Safety Report 7599351-1 (Version None)
Quarter: 2011Q3

REPORT INFORMATION
  Report Type: 
  Country: None (occurrence: None)
  Receive Date: 20110711
  Receipt Date: 20091116
  Transmission Date: 20111222
  Serious: Yes (Other)
  Sender: FDA-Public Use
  Company Number: US-BAYER-2011-009259

PATIENT
  Age: 79 Year
  Sex: Female
  Weight: 68 kg

DRUGS (19)
  1. TRASYLOL [Suspect]
     Indication: MITRAL VALVE REPLACEMENT
  2. AMIODARONE HCL [Concomitant]
     Dosage: 200 MG, QD
  3. TRASYLOL [Suspect]
     Indication: AORTIC VALVE REPLACEMENT
     Dosage: 1 ML, TEST DOSE, 200ML LOADING DOSE
     Route: 042
     Dates: start: 20040107, end: 20040107
  4. LISINOPRIL [Concomitant]
     Dosage: 10 MG, BEDTIME
  5. LIPITOR [Concomitant]
     Dosage: 40 MG, ONCE LONG TERM USE
     Route: 048
  6. ANCEF [Concomitant]
     Dosage: 1 G, UNK
     Route: 042
     Dates: start: 20040107
  7. TRASYLOL [Suspect]
     Indication: CORONARY ARTERY BYPASS
  8. REMAX [Concomitant]
     Dosage: DAILY
  9. VERSED [Concomitant]
     Dosage: 10 MG, UNK
     Route: 042
     Dates: start: 20040107, end: 20040107
  10. RENAGEL [Concomitant]
     Dosage: 2 TABLETS
  11. RED BLOOD CELLS [Concomitant]
     Dosage: 3 U, UNK
     Route: 042
     Dates: start: 20040107
  12. OMEPRAZOLE [Concomitant]
     Dosage: 20 MG, QD
  13. ALPRAZOLAM [Concomitant]
     Dosage: 0.5 MG, UNK
  14. HYDRALAZINE HCL [Concomitant]
     Dosage: 50 MG, ONCE, LONG TERM USE
     Route: 048
  15. PLAVIX [Concomitant]
     Dosage: 75 MG, QD
  16. DILANTIN [Concomitant]
  17. LASIX [Concomitant]
     Dosage: 80 MG, ONCE, LONG TERM USE
     Route: 048
  18. NORVASC [Concomitant]
     Dosage: 10 MG, ONCE
  19. HEPARIN [Concomitant]
     Dosage: UNK
     Route: 042
     Dates: start: 20040107

REACTIONS (11)
  - RENAL INJURY [None]
  - RENAL FAILURE CHRONIC [None]
  - EMOTIONAL DISTRESS [None]
  - UNEVALUABLE EVENT [None]
  - STRESS [None]
  - FEAR [None]
  - PAIN [None]
  - RENAL IMPAIRMENT [None]
  - RENAL FAILURE [None]
  - ANXIETY [None]
  - INJURY [None]
